FAERS Safety Report 4968390-9 (Version None)
Quarter: 2006Q2

REPORT INFORMATION
  Report Type: 
  Country: None (occurrence: None)
  Receive Date: 20060410
  Receipt Date: 20060405
  Transmission Date: 20061013
  Serious: Yes (Hospitalization)
  Sender: FDA-Public Use
  Company Number: JP-BOEHRINGER INGELHEIM PHARMACEUTICALS, INC.-2006-BP-03787NB

PATIENT
  Sex: Male

DRUGS (10)
  1. BI-SIFROL TABLETS [Suspect]
     Indication: PARKINSON'S DISEASE
     Route: 048
     Dates: start: 20050312, end: 20060113
  2. NEODOPASTON [Suspect]
     Indication: PARKINSON'S DISEASE
     Route: 048
     Dates: start: 20031208
  3. SYMMETREL [Suspect]
     Indication: PARKINSON'S DISEASE
     Route: 048
     Dates: start: 20021113, end: 20060105
  4. FP [Suspect]
     Indication: PARKINSON'S DISEASE
     Route: 048
     Dates: start: 20050228, end: 20060105
  5. CABASER [Suspect]
     Indication: PARKINSON'S DISEASE
     Route: 048
     Dates: start: 20031208, end: 20060113
  6. SENNOSIDE [Concomitant]
     Indication: DYSPEPSIA
     Route: 048
     Dates: start: 20031208
  7. EPADEL S (ETHYL ICOSAPENTATE) [Concomitant]
     Indication: HYPERLIPIDAEMIA
     Route: 048
     Dates: start: 20021113
  8. AMOBAN [Concomitant]
     Indication: INSOMNIA
     Route: 048
     Dates: start: 20021113, end: 20060109
  9. MAGLAX [Concomitant]
     Indication: DYSPEPSIA
     Route: 048
     Dates: start: 20050608
  10. LENDORMIN [Concomitant]
     Indication: INSOMNIA
     Route: 048
     Dates: start: 20060110

REACTIONS (2)
  - HALLUCINATION, AUDITORY [None]
  - PERSECUTORY DELUSION [None]
